FAERS Safety Report 18485194 (Version 1)
Quarter: 2020Q4

REPORT INFORMATION
  Report Type: Spontaneous
  Country: TT (occurrence: TT)
  Receive Date: 20201110
  Receipt Date: 20201110
  Transmission Date: 20210114
  Serious: Yes (Hospitalization, Other)
  Sender: FDA-Public Use
  Company Number: TT-BAYER-2020-239317

PATIENT
  Sex: Female

DRUGS (1)
  1. MIRENA [Suspect]
     Active Substance: LEVONORGESTREL
     Dosage: 20 ?G PER DAY,  CONTINUOUSLY
     Route: 015
     Dates: start: 202008

REACTIONS (1)
  - Syncope [None]

NARRATIVE: CASE EVENT DATE: 202010
